FAERS Safety Report 17013309 (Version 1)
Quarter: 2019Q4

REPORT INFORMATION
  Report Type: Spontaneous
  Country: US (occurrence: US)
  Receive Date: 20191001
  Receipt Date: 20191001
  Transmission Date: 20200122
  Serious: Yes (Life-Threatening, Disabling)
  Sender: FDA-Public Use
  Company Number: None

PATIENT
  Age: 57 Year
  Sex: Female
  Weight: 47.63 kg

DRUGS (3)
  1. OLANZAPINE. [Suspect]
     Active Substance: OLANZAPINE
  2. TRAZODONE [Suspect]
     Active Substance: TRAZODONE HYDROCHLORIDE
     Route: 048
  3. DIVALPROEX [Suspect]
     Active Substance: DIVALPROEX SODIUM

REACTIONS (63)
  - Mouth swelling [None]
  - Movement disorder [None]
  - Hypoaesthesia [None]
  - Depression [None]
  - Swelling face [None]
  - Muscle spasms [None]
  - Halo vision [None]
  - Tremor [None]
  - Mental impairment [None]
  - Pain [None]
  - Paraesthesia oral [None]
  - Anxiety [None]
  - Hallucination, auditory [None]
  - Eye pain [None]
  - Fatigue [None]
  - Hyperhidrosis [None]
  - Dysphagia [None]
  - Urticaria [None]
  - Peripheral swelling [None]
  - Pharyngeal paraesthesia [None]
  - Asthenia [None]
  - Dizziness [None]
  - Haemorrhage [None]
  - Dry mouth [None]
  - Nervous system disorder [None]
  - Hunger [None]
  - Chills [None]
  - Cough [None]
  - Dyspnoea [None]
  - Weight increased [None]
  - Bone disorder [None]
  - Suicidal ideation [None]
  - Pyrexia [None]
  - Irritability [None]
  - Somnolence [None]
  - Alopecia [None]
  - Dyskinesia [None]
  - Lymphadenopathy [None]
  - Chest discomfort [None]
  - Contusion [None]
  - Urinary tract disorder [None]
  - Lymph node pain [None]
  - Musculoskeletal disorder [None]
  - Aggression [None]
  - Thinking abnormal [None]
  - Abnormal behaviour [None]
  - Restlessness [None]
  - Confusional state [None]
  - Muscle twitching [None]
  - Palpitations [None]
  - Muscle disorder [None]
  - Musculoskeletal stiffness [None]
  - Infection susceptibility increased [None]
  - Oropharyngeal pain [None]
  - Seizure [None]
  - Arrhythmia [None]
  - Pruritus [None]
  - Hallucination, visual [None]
  - Heart rate irregular [None]
  - Syncope [None]
  - Insomnia [None]
  - Visual impairment [None]
  - Thirst [None]

NARRATIVE: CASE EVENT DATE: 20190912
